FAERS Safety Report 18577870 (Version 1)
Quarter: 2020Q4

REPORT INFORMATION
  Report Type: Spontaneous
  Country: ES (occurrence: ES)
  Receive Date: 20201204
  Receipt Date: 20201204
  Transmission Date: 20210114
  Serious: Yes (Hospitalization, Other)
  Sender: FDA-Public Use
  Company Number: ES-SUN PHARMACEUTICAL INDUSTRIES LTD-2020RR-269752

PATIENT
  Age: 77 Year
  Sex: Female

DRUGS (3)
  1. ALENDRONIC ACID [Suspect]
     Active Substance: ALENDRONIC ACID
     Indication: SPINAL OSTEOARTHRITIS
     Dosage: ()
     Route: 048
     Dates: start: 20200924, end: 20201013
  2. LACOSAMIDA [Suspect]
     Active Substance: LACOSAMIDE
     Indication: ANALGESIC THERAPY
     Dosage: ()
     Route: 048
     Dates: start: 20200930, end: 20201007
  3. OXICODONA/NALOXONA CINFA 20 MG/10 MG COMPRIMIDOS DE LIBERACION PROL [Suspect]
     Active Substance: NALOXONE HYDROCHLORIDE\OXYCODONE HYDROCHLORIDE
     Indication: ANALGESIC THERAPY
     Dosage: ()
     Route: 048
     Dates: start: 20200930, end: 20201007

REACTIONS (1)
  - Drug-induced liver injury [Recovered/Resolved]

NARRATIVE: CASE EVENT DATE: 20201006
